FAERS Safety Report 4273757-0 (Version None)
Quarter: 2004Q1

REPORT INFORMATION
  Report Type: 
  Country: None (occurrence: None)
  Receive Date: 20040115
  Receipt Date: 20040105
  Transmission Date: 20041129
  Serious: Yes (Hospitalization, Other)
  Sender: FDA-Public Use
  Company Number: 200885

PATIENT
  Age: 83 Year
  Sex: Male
  Weight: 50.8 kg

DRUGS (6)
  1. RITUXAN [Suspect]
     Indication: CHRONIC LYMPHOCYTIC LEUKAEMIA
     Dosage: 375 MG/M2, INTRAVENOUS
     Route: 042
     Dates: start: 20030322
  2. METHYLPREDNISOLONE [Suspect]
     Indication: CHRONIC LYMPHOCYTIC LEUKAEMIA
     Dosage: 1 G/M2, INTRAVENOUS
     Route: 042
     Dates: start: 20030322
  3. NEURONTIN [Concomitant]
  4. ATENOLOL [Concomitant]
  5. HYTRIN [Concomitant]
  6. LORTAB [Concomitant]

REACTIONS (1)
  - PANCREATITIS [None]
